FAERS Safety Report 6678594-5 (Version None)
Quarter: 2010Q2

REPORT INFORMATION
  Report Type: 
  Country: None (occurrence: None)
  Receive Date: 20100412
  Receipt Date: 20100412
  Transmission Date: 20101027
  Serious: Yes (Death)
  Sender: FDA-Public Use
  Company Number: None

PATIENT
  Age: 86 Year
  Sex: Male
  Weight: 71.6683 kg

DRUGS (2)
  1. ELTROMBOPAG 50MG [Suspect]
     Indication: MYELODYSPLASTIC SYNDROME
     Dosage: 75MG QD PO
     Route: 048
     Dates: start: 20090815, end: 20091015
  2. ELTROMBOPAG 50MG [Suspect]
     Indication: THROMBOCYTOPENIA
     Dosage: 75MG QD PO
     Route: 048
     Dates: start: 20090815, end: 20091015

REACTIONS (4)
  - NO THERAPEUTIC RESPONSE [None]
  - PNEUMONIA [None]
  - WHITE BLOOD CELL COUNT INCREASED [None]
  - WHITE BLOOD CELL DISORDER [None]
